FAERS Safety Report 5022332-9 (Version None)
Quarter: 2006Q2

REPORT INFORMATION
  Report Type: 
  Country: None (occurrence: None)
  Receive Date: 20060609
  Receipt Date: 20060601
  Transmission Date: 20061013
  Serious: Yes (Death)
  Sender: FDA-Public Use
  Company Number: NSADSS2002024130

PATIENT
  Sex: Female

DRUGS (4)
  1. REMICADE [Suspect]
     Route: 041
     Dates: start: 20010809
  2. REMICADE [Suspect]
     Indication: RHEUMATOID ARTHRITIS
     Route: 041
     Dates: start: 20010809
  3. CELEBREX [Concomitant]
     Indication: ARTHRITIS
     Route: 048
  4. PREDNISONE [Concomitant]
     Indication: ARTHRITIS
     Route: 048

REACTIONS (4)
  - ARTERIOSCLEROSIS CORONARY ARTERY [None]
  - DRESSLER'S SYNDROME [None]
  - MYOCARDIAL ISCHAEMIA [None]
  - OESOPHAGITIS [None]
